FAERS Safety Report 23862757 (Version 1)
Quarter: 2024Q2

REPORT INFORMATION
  Report Type: Spontaneous
  Country: US (occurrence: None)
  Receive Date: 20240515
  Receipt Date: 20240515
  Transmission Date: 20240715
  Serious: Yes (Other)
  Sender: FDA-Public Use
  Company Number: None

PATIENT
  Age: 65 Year
  Sex: Female
  Weight: 63.9 kg

DRUGS (2)
  1. AMLODIPINE BESYLATE [Suspect]
     Active Substance: AMLODIPINE BESYLATE
     Indication: Hypertension
     Dosage: FREQUENCY : TWICE A DAY;?
     Route: 048
  2. AREDS-2 [Concomitant]

REACTIONS (5)
  - Heart rate irregular [None]
  - Brain fog [None]
  - Pollakiuria [None]
  - Confusional state [None]
  - Cognitive disorder [None]

NARRATIVE: CASE EVENT DATE: 20240102
